FAERS Safety Report 17850853 (Version 9)
Quarter: 2023Q2

REPORT INFORMATION
  Report Type: Report from Study
  Country: US (occurrence: US)
  Receive Date: 20200602
  Receipt Date: 20230628
  Transmission Date: 20230722
  Serious: Yes (Hospitalization, Other)
  Sender: FDA-Public Use
  Company Number: US-SA-2020SA140429

PATIENT
  Age: 39 Year
  Sex: Female

DRUGS (2)
  1. DUPIXENT [Suspect]
     Active Substance: DUPILUMAB
     Indication: Asthma
     Dosage: 600 MG, 1X
     Route: 058
  2. DUPIXENT [Suspect]
     Active Substance: DUPILUMAB
     Dosage: 300 MG, QOW
     Route: 058
     Dates: start: 20200526

REACTIONS (22)
  - Hydrocephalus [Unknown]
  - Iritis [Not Recovered/Not Resolved]
  - Sudden visual loss [Not Recovered/Not Resolved]
  - Intraocular pressure increased [Recovering/Resolving]
  - Intracranial pressure increased [Not Recovered/Not Resolved]
  - Eye pain [Recovering/Resolving]
  - Photophobia [Not Recovered/Not Resolved]
  - Hospitalisation [Unknown]
  - Emergency care [Unknown]
  - Asthma [Unknown]
  - Conjunctivitis [Not Recovered/Not Resolved]
  - Headache [Unknown]
  - Herpes zoster [Unknown]
  - Nasal congestion [Recovering/Resolving]
  - Middle insomnia [Not Recovered/Not Resolved]
  - Taste disorder [Not Recovered/Not Resolved]
  - Colour blindness [Not Recovered/Not Resolved]
  - Respiratory disorder [Not Recovered/Not Resolved]
  - Cough [Unknown]
  - Loss of personal independence in daily activities [Not Recovered/Not Resolved]
  - Asthma [Recovering/Resolving]
  - Drug ineffective [Unknown]

NARRATIVE: CASE EVENT DATE: 20200101
